FAERS Safety Report 7765842-3 (Version None)
Quarter: 2011Q3

REPORT INFORMATION
  Report Type: 
  Country: None (occurrence: None)
  Receive Date: 20110921
  Receipt Date: 20110906
  Transmission Date: 20111222
  Serious: Yes (Death, Hospitalization)
  Sender: FDA-Public Use
  Company Number: PL-WATSON-2011-14681

PATIENT
  Age: 12 Year
  Sex: Female

DRUGS (2)
  1. TACROLIMUS [Suspect]
     Indication: TRANSPLANT REJECTION
     Dosage: 6 MG, DAILY TAPERED TO 3 MG
     Route: 048
  2. CYCLOSPORINE [Suspect]
     Indication: TRANSPLANT REJECTION
     Dosage: UNK

REACTIONS (3)
  - CEREBROVASCULAR INSUFFICIENCY [None]
  - DRUG INEFFECTIVE [None]
  - POSTERIOR REVERSIBLE ENCEPHALOPATHY SYNDROME [None]
